FAERS Safety Report 15851975 (Version 3)
Quarter: 2019Q1

REPORT INFORMATION
  Report Type: Spontaneous
  Country: PT (occurrence: PT)
  Receive Date: 20190122
  Receipt Date: 20190208
  Transmission Date: 20190417
  Serious: Yes (Hospitalization, Other)
  Sender: FDA-Public Use
  Company Number: PT-AUROBINDO-AUR-APL-2019-002292

PATIENT

DRUGS (1)
  1. AMOXICILLIN+CLAVULANIC ACID [Suspect]
     Active Substance: AMOXICILLIN\CLAVULANIC ACID
     Indication: RESPIRATORY TRACT INFECTION
     Dosage: UNK
     Route: 065

REACTIONS (7)
  - Cholestasis [Recovered/Resolved]
  - Decreased appetite [Recovered/Resolved]
  - Faeces pale [Recovered/Resolved]
  - Jaundice [Recovered/Resolved]
  - Choluria [Recovered/Resolved]
  - Jaundice cholestatic [Recovered/Resolved]
  - Pruritus generalised [Recovered/Resolved]
